FAERS Safety Report 12627782 (Version 1)
Quarter: 2016Q3

REPORT INFORMATION
  Report Type: Spontaneous
  Country: AU (occurrence: AU)
  Receive Date: 20160806
  Receipt Date: 20160806
  Transmission Date: 20161109
  Serious: Yes (Hospitalization)
  Sender: FDA-Public Use
  Company Number: AU-ACCORD-042974

PATIENT
  Age: 53 Year
  Sex: Male

DRUGS (9)
  1. RAMIPRIL. [Suspect]
     Active Substance: RAMIPRIL
     Dosage: 28 X  1.25 MG
  2. APIXABAN [Suspect]
     Active Substance: APIXABAN
     Indication: ATRIAL FIBRILLATION
     Dosage: 40X5 MG
  3. ATORVASTATIN [Suspect]
     Active Substance: ATORVASTATIN
     Dosage: 7 X 40 MG
  4. COLCHICINE. [Suspect]
     Active Substance: COLCHICINE
     Dosage: 12 X 0.5 MG
  5. BISOPROLOL [Suspect]
     Active Substance: BISOPROLOL
     Dosage: 42 X 2.5 MG
  6. PARACETAMOL [Suspect]
     Active Substance: ACETAMINOPHEN
     Dosage: 4 X 500 MG
  7. CODEINE [Suspect]
     Active Substance: CODEINE
  8. PHENYLEPHRINE [Suspect]
     Active Substance: PHENYLEPHRINE\PHENYLEPHRINE HYDROCHLORIDE
  9. ALUMINIUM HYDROXIDE/MAGNESIUM HYDROXIDE [Suspect]
     Active Substance: ALUMINUM HYDROXIDE\MAGNESIUM HYDROXIDE
     Dosage: 10 X 3.74 MG

REACTIONS (3)
  - Haemorrhage [Recovered/Resolved]
  - Hypotension [Recovered/Resolved]
  - Intentional overdose [Unknown]
